FAERS Safety Report 25741770 (Version 2)
Quarter: 2025Q3

REPORT INFORMATION
  Report Type: Spontaneous
  Country: US (occurrence: US)
  Receive Date: 20250829
  Receipt Date: 20250923
  Transmission Date: 20251020
  Serious: Yes (Other)
  Sender: DELCATH SYSTEMS
  Company Number: US-DELCATH SYSTEMS-DELC-000020

PATIENT
  Age: 50 Year
  Sex: Male

DRUGS (7)
  1. HEPZATO [Suspect]
     Active Substance: MELPHALAN
     Indication: Metastases to liver
     Route: 013
     Dates: start: 20250505, end: 20250505
  2. HEPZATO [Suspect]
     Active Substance: MELPHALAN
     Route: 013
     Dates: start: 20250825, end: 20250825
  3. HEPZATO [Suspect]
     Active Substance: MELPHALAN
     Dates: start: 2025, end: 2025
  4. TEBENTAFUSP [Suspect]
     Active Substance: TEBENTAFUSP
     Indication: Metastases to liver
     Dates: start: 20240220
  5. TEBENTAFUSP [Suspect]
     Active Substance: TEBENTAFUSP
     Dates: start: 20250217
  6. CRIZOTINIB [Suspect]
     Active Substance: CRIZOTINIB
     Indication: Metastases to liver
     Dates: start: 20170530
  7. CRIZOTINIB [Suspect]
     Active Substance: CRIZOTINIB
     Dates: start: 20180501

REACTIONS (6)
  - Exertional rhabdomyolysis [Unknown]
  - Hepatic lesion [Unknown]
  - Platelet count decreased [Unknown]
  - Malaise [Unknown]
  - Hepatic enzyme increased [Unknown]
  - Full blood count abnormal [Unknown]

NARRATIVE: CASE EVENT DATE: 20250626
